FAERS Safety Report 11561716 (Version 1)
Quarter: 2015Q3

REPORT INFORMATION
  Report Type: Spontaneous
  Country: US (occurrence: US)
  Receive Date: 20150928
  Receipt Date: 20150928
  Transmission Date: 20151125
  Serious: No
  Sender: FDA-Public Use
  Company Number: US-ASTRAZENECA-2015SE89697

PATIENT
  Sex: Male

DRUGS (1)
  1. BYDUREON [Suspect]
     Active Substance: EXENATIDE
     Route: 058

REACTIONS (5)
  - Product quality issue [Unknown]
  - Injection site pain [Unknown]
  - Injection site scar [Unknown]
  - Injection site haemorrhage [Unknown]
  - Underdose [Unknown]
